FAERS Safety Report 12379736 (Version 2)
Quarter: 2016Q2

REPORT INFORMATION
  Report Type: Spontaneous
  Country: DE (occurrence: DE)
  Receive Date: 20160518
  Receipt Date: 20160526
  Transmission Date: 20160815
  Serious: Yes (Hospitalization, Other)
  Sender: FDA-Public Use
  Company Number: DE-UCBSA-2016018194

PATIENT
  Age: 56 Year
  Sex: Female
  Weight: 82 kg

DRUGS (12)
  1. PRESOMEN COMPOSITUM [Suspect]
     Active Substance: ESTROGENS, CONJUGATED\MEDROGESTONE
     Indication: PRODUCT USED FOR UNKNOWN INDICATION
     Dosage: UNK
  2. VENLAFAXINE [Suspect]
     Active Substance: VENLAFAXINE HYDROCHLORIDE
     Indication: PRODUCT USED FOR UNKNOWN INDICATION
     Dosage: UNK
  3. LAMOTRIGINE. [Suspect]
     Active Substance: LAMOTRIGINE
     Indication: PRODUCT USED FOR UNKNOWN INDICATION
     Dosage: UNK
  4. METOPROLOL. [Suspect]
     Active Substance: METOPROLOL
     Dosage: 9 TABLETS OVER 12 HOURS, TOTAL 427.5 MG
     Dates: start: 20160510, end: 20160511
  5. KEPPRA [Suspect]
     Active Substance: LEVETIRACETAM
     Dosage: TOTAL 27000 MG
     Dates: start: 20160510, end: 20160511
  6. ASPIRIN. [Suspect]
     Active Substance: ASPIRIN
     Dosage: TOTAL 1080 MG, UNKNOWN AMOUNT OVER 12 HOURS
     Dates: start: 20160510, end: 20160511
  7. KEPPRA [Suspect]
     Active Substance: LEVETIRACETAM
     Indication: PRODUCT USED FOR UNKNOWN INDICATION
     Dosage: UNK
  8. PRESOMEN COMPOSITUM [Suspect]
     Active Substance: ESTROGENS, CONJUGATED\MEDROGESTONE
     Dosage: 9 DF, TOTAL
     Dates: start: 20160510, end: 20160511
  9. ASPIRIN. [Suspect]
     Active Substance: ASPIRIN
     Indication: PRODUCT USED FOR UNKNOWN INDICATION
     Dosage: UNK
  10. METOPROLOL. [Suspect]
     Active Substance: METOPROLOL
     Indication: PRODUCT USED FOR UNKNOWN INDICATION
     Dosage: UNK
  11. VENLAFAXINE [Suspect]
     Active Substance: VENLAFAXINE HYDROCHLORIDE
     Dosage: 9 TABLETS OVER 12 HOURS, TOTAL 1350 MG
     Dates: start: 20160510, end: 20160511
  12. LAMOTRIGINE. [Suspect]
     Active Substance: LAMOTRIGINE
     Dosage: TOTAL 2700 MG UNKNOWN AMOUNT OVER 12 HOURS
     Dates: start: 20160510, end: 20160511

REACTIONS (6)
  - Somnolence [Recovered/Resolved]
  - Acidosis [Recovered/Resolved]
  - Liver function test increased [Recovered/Resolved]
  - Intentional overdose [Unknown]
  - Suicide attempt [Recovered/Resolved]
  - Disorientation [Recovered/Resolved]

NARRATIVE: CASE EVENT DATE: 201605
